FAERS Safety Report 11537455 (Version 2)
Quarter: 2015Q4

REPORT INFORMATION
  Report Type: Spontaneous
  Country: US (occurrence: US)
  Receive Date: 20150922
  Receipt Date: 20151013
  Transmission Date: 20160304
  Serious: Yes (Other)
  Sender: FDA-Public Use
  Company Number: US-PFIZER INC-2015304017

PATIENT
  Age: 67 Year
  Sex: Female
  Weight: 63 kg

DRUGS (2)
  1. IBRANCE [Suspect]
     Active Substance: PALBOCICLIB
     Indication: BREAST NEOPLASM
     Dosage: 100 MG, DAILY CYCLIC (DAY 1-21 Q28 DAYS)
     Route: 048
     Dates: start: 20150909
  2. IBRANCE [Suspect]
     Active Substance: PALBOCICLIB
     Indication: BREAST CANCER FEMALE
     Dosage: 125 MG (ONE CAPSULE) D1- D21 Q28 D
     Route: 048
     Dates: start: 201508, end: 201509

REACTIONS (3)
  - White blood cell count decreased [Unknown]
  - Fatigue [Unknown]
  - Bone pain [Unknown]

NARRATIVE: CASE EVENT DATE: 20150909
